FAERS Safety Report 23937329 (Version 1)
Quarter: 2024Q2

REPORT INFORMATION
  Report Type: Spontaneous
  Country: US (occurrence: None)
  Receive Date: 20240604
  Receipt Date: 20240604
  Transmission Date: 20240716
  Serious: Yes (Hospitalization)
  Sender: FDA-Public Use
  Company Number: None

PATIENT
  Sex: Female
  Weight: 85.2 kg

DRUGS (4)
  1. DARATUMUMAB\HYALURONIDASE-FIHJ [Suspect]
     Active Substance: DARATUMUMAB\HYALURONIDASE-FIHJ
     Dates: end: 20240502
  2. DEXAMETHASONE [Suspect]
     Active Substance: DEXAMETHASONE
     Dates: start: 20240516
  3. LENALIDOMIDE [Suspect]
     Active Substance: LENALIDOMIDE
     Dates: end: 20240522
  4. VELCADE [Suspect]
     Active Substance: BORTEZOMIB
     Dates: end: 20240516

REACTIONS (5)
  - Dyspnoea [None]
  - Urinary incontinence [None]
  - Iron deficiency anaemia [None]
  - Heart rate increased [None]
  - Computerised tomogram abnormal [None]

NARRATIVE: CASE EVENT DATE: 20240527
